FAERS Safety Report 12815967 (Version 1)
Quarter: 2016Q4

REPORT INFORMATION
  Report Type: Spontaneous
  Country: US (occurrence: US)
  Receive Date: 20161005
  Receipt Date: 20161005
  Transmission Date: 20170207
  Serious: No
  Sender: FDA-Public Use
  Company Number: US-AMGEN-USASP2015118531

PATIENT
  Age: 78 Year
  Sex: Female

DRUGS (3)
  1. PROTEIN [Concomitant]
     Active Substance: PROTEIN
     Indication: LYME DISEASE
     Dosage: UNK UNK, Q4H
  2. SYNTHROID [Concomitant]
     Active Substance: LEVOTHYROXINE SODIUM
  3. PROLIA [Suspect]
     Active Substance: DENOSUMAB
     Indication: PRODUCT USED FOR UNKNOWN INDICATION
     Dosage: UNK
     Route: 065
     Dates: start: 2015

REACTIONS (5)
  - Nasopharyngitis [Recovering/Resolving]
  - Alopecia [Unknown]
  - Osteoarthritis [Unknown]
  - Fall [Unknown]
  - Pyrexia [Recovering/Resolving]

NARRATIVE: CASE EVENT DATE: 2015
